FAERS Safety Report 18203414 (Version 1)
Quarter: 2020Q3

REPORT INFORMATION
  Report Type: Spontaneous
  Country: JP (occurrence: JP)
  Receive Date: 20200827
  Receipt Date: 20200827
  Transmission Date: 20201103
  Serious: Yes (Life-Threatening, Other)
  Sender: FDA-Public Use
  Company Number: JP-PFIZER INC-2020331684

PATIENT
  Age: 67 Year
  Sex: Female
  Weight: 49.4 kg

DRUGS (4)
  1. METHYLPREDNISOLONE. [Suspect]
     Active Substance: METHYLPREDNISOLONE
     Dosage: 5000 MG/ BODY (ON DAYS 5 AND 6)
  2. DOXORUBICIN HCL [Suspect]
     Active Substance: DOXORUBICIN HYDROCHLORIDE
     Indication: THYMOMA
     Dosage: 40 MG/M2 (DAY 1)
  3. METHYLPREDNISOLONE. [Suspect]
     Active Substance: METHYLPREDNISOLONE
     Indication: THYMOMA
     Dosage: 1000 MG/ BODY (DAYS 1 TO 4)
  4. CISPLATIN. [Suspect]
     Active Substance: CISPLATIN
     Indication: THYMOMA
     Dosage: 20 MG/M2; DAYS 1 TO 4

REACTIONS (1)
  - Neutropenia [Unknown]
